FAERS Safety Report 24652578 (Version 1)
Quarter: 2024Q4

REPORT INFORMATION
  Report Type: Spontaneous
  Country: US (occurrence: None)
  Receive Date: 20241121
  Receipt Date: 20241121
  Transmission Date: 20250115
  Serious: Yes (Disabling)
  Sender: Public
  Company Number: None

PATIENT
  Age: 79 Year
  Sex: Female
  Weight: 80.74 kg

DRUGS (2)
  1. KYPROLIS [Suspect]
     Active Substance: CARFILZOMIB
  2. DARZALEX FASPRO [Suspect]
     Active Substance: DARATUMUMAB\HYALURONIDASE-FIHJ

REACTIONS (11)
  - Cough [None]
  - Dyspnoea [None]
  - Nonspecific reaction [None]
  - Thirst [None]
  - Loss of consciousness [None]
  - Memory impairment [None]
  - Asthenia [None]
  - Urine output decreased [None]
  - Chromaturia [None]
  - Headache [None]
  - Pulmonary hypertension [None]

NARRATIVE: CASE EVENT DATE: 20230901
